FAERS Safety Report 5215956-7 (Version None)
Quarter: 2007Q1

REPORT INFORMATION
  Report Type: 
  Country: None (occurrence: None)
  Receive Date: 20070123
  Receipt Date: 20070115
  Transmission Date: 20070707
  Serious: Yes (Disabling)
  Sender: FDA-Public Use
  Company Number: 2006CG01654

PATIENT
  Age: 845 Month
  Sex: Male

DRUGS (6)
  1. ZOLADEX [Suspect]
     Indication: PROSTATE CANCER
     Route: 058
     Dates: start: 20050901, end: 20051201
  2. RENITEC [Concomitant]
  3. ATORVASTATIN CALCIUM [Concomitant]
  4. AMLOR [Concomitant]
  5. ASPEGIC 1000 [Concomitant]
  6. ALLOPURINOL SODIUM [Concomitant]

REACTIONS (3)
  - HOT FLUSH [None]
  - HYPERHIDROSIS [None]
  - SECONDARY HYPOGONADISM [None]
